FAERS Safety Report 15937048 (Version 2)
Quarter: 2019Q3

REPORT INFORMATION
  Report Type: Spontaneous
  Country: US (occurrence: US)
  Receive Date: 20190208
  Receipt Date: 20190801
  Transmission Date: 20191004
  Serious: Yes (Other)
  Sender: FDA-Public Use
  Company Number: US-ASTRAZENECA-2019SE09597

PATIENT
  Age: 78 Year
  Sex: Female
  Weight: 117 kg

DRUGS (13)
  1. NEXIUM 24HR [Suspect]
     Active Substance: ESOMEPRAZOLE MAGNESIUM
     Route: 048
  2. NEXIUM [Suspect]
     Active Substance: ESOMEPRAZOLE MAGNESIUM
     Indication: GASTROOESOPHAGEAL REFLUX DISEASE
     Route: 048
  3. NEXIUM [Suspect]
     Active Substance: ESOMEPRAZOLE MAGNESIUM
     Indication: GASTROOESOPHAGEAL REFLUX DISEASE
     Route: 048
     Dates: start: 1983, end: 2009
  4. PROTONIX [Suspect]
     Active Substance: PANTOPRAZOLE SODIUM
     Indication: GASTROOESOPHAGEAL REFLUX DISEASE
     Dosage: ONE MONTH
     Route: 065
  5. PRILOSEC [Suspect]
     Active Substance: OMEPRAZOLE MAGNESIUM
     Route: 048
  6. PREVACID 24 HR [Suspect]
     Active Substance: LANSOPRAZOLE
     Route: 065
  7. ZANTAC [Suspect]
     Active Substance: RANITIDINE HYDROCHLORIDE
     Indication: GASTROOESOPHAGEAL REFLUX DISEASE
     Route: 065
     Dates: start: 2009
  8. MULTI VITAMIN [Concomitant]
     Active Substance: VITAMINS
  9. PRILOSEC OTC [Suspect]
     Active Substance: OMEPRAZOLE MAGNESIUM
     Route: 048
  10. FISH OIL [Concomitant]
     Active Substance: FISH OIL
     Indication: CARDIAC DISORDER
  11. DEXILANT [Suspect]
     Active Substance: DEXLANSOPRAZOLE
     Route: 065
  12. TYLENOL [Concomitant]
     Active Substance: ACETAMINOPHEN
     Indication: INSOMNIA
  13. PREVACID [Suspect]
     Active Substance: LANSOPRAZOLE
     Route: 065

REACTIONS (4)
  - Rebound acid hypersecretion [Unknown]
  - Renal injury [Unknown]
  - Chronic kidney disease [Not Recovered/Not Resolved]
  - Renal failure [Unknown]

NARRATIVE: CASE EVENT DATE: 2016
